FAERS Safety Report 23268662 (Version 6)
Quarter: 2024Q1

REPORT INFORMATION
  Report Type: Report from Study
  Country: FR (occurrence: FR)
  Receive Date: 20231206
  Receipt Date: 20240313
  Transmission Date: 20240409
  Serious: Yes (Death, Life-Threatening, Hospitalization, Other)
  Sender: FDA-Public Use
  Company Number: None

PATIENT
  Age: 58 Year
  Sex: Male

DRUGS (17)
  1. ENFORTUMAB VEDOTIN [Suspect]
     Active Substance: ENFORTUMAB VEDOTIN
     Indication: Bladder transitional cell carcinoma
     Dosage: 85 MG, CYCLIC (C1,D1)
     Route: 042
     Dates: start: 20230627
  2. ENFORTUMAB VEDOTIN [Suspect]
     Active Substance: ENFORTUMAB VEDOTIN
     Dosage: 85 MG, CYCLIC (C1,D8)
     Route: 042
     Dates: start: 20230704
  3. ENFORTUMAB VEDOTIN [Suspect]
     Active Substance: ENFORTUMAB VEDOTIN
     Dosage: 85 MG, CYCLIC (C1,D15)
     Route: 042
     Dates: start: 20230711
  4. ENFORTUMAB VEDOTIN [Suspect]
     Active Substance: ENFORTUMAB VEDOTIN
     Dosage: 85 MG, CYCLIC (C2,D1)
     Route: 042
     Dates: start: 20230725
  5. ENFORTUMAB VEDOTIN [Suspect]
     Active Substance: ENFORTUMAB VEDOTIN
     Dosage: 85 MG, CYCLIC (C2,D8)
     Route: 042
     Dates: start: 20230801
  6. ENFORTUMAB VEDOTIN [Suspect]
     Active Substance: ENFORTUMAB VEDOTIN
     Dosage: 70 MG, CYCLIC (C2,D15)
     Route: 042
     Dates: start: 20230808
  7. ENFORTUMAB VEDOTIN [Suspect]
     Active Substance: ENFORTUMAB VEDOTIN
     Dosage: 70 MG, CYCLIC (C3,D1)
     Route: 042
     Dates: start: 20230829
  8. ENFORTUMAB VEDOTIN [Suspect]
     Active Substance: ENFORTUMAB VEDOTIN
     Dosage: 65 MG, CYCLIC (C3,D8)
     Route: 042
     Dates: start: 20230906
  9. ENFORTUMAB VEDOTIN [Suspect]
     Active Substance: ENFORTUMAB VEDOTIN
     Dosage: 65 MG, CYCLIC (C3,D15)
     Route: 042
     Dates: start: 20230912
  10. ENFORTUMAB VEDOTIN [Suspect]
     Active Substance: ENFORTUMAB VEDOTIN
     Dosage: 65 MG, CYCLIC (C4,D1)
     Route: 042
     Dates: start: 20230926
  11. ENFORTUMAB VEDOTIN [Suspect]
     Active Substance: ENFORTUMAB VEDOTIN
     Dosage: 65 MG, CYCLIC (C4,D8)
     Route: 042
     Dates: start: 20231003
  12. ENFORTUMAB VEDOTIN [Suspect]
     Active Substance: ENFORTUMAB VEDOTIN
     Dosage: 65 MG, CYCLIC (C4,D15)
     Route: 042
     Dates: start: 20231010
  13. ENFORTUMAB VEDOTIN [Suspect]
     Active Substance: ENFORTUMAB VEDOTIN
     Dosage: 65 MG, CYCLIC (C5,D1)
     Route: 042
     Dates: start: 20231024
  14. ENFORTUMAB VEDOTIN [Suspect]
     Active Substance: ENFORTUMAB VEDOTIN
     Dosage: 65 MG, CYCLIC (C5,D8)
     Route: 042
     Dates: start: 20231031
  15. ENFORTUMAB VEDOTIN [Suspect]
     Active Substance: ENFORTUMAB VEDOTIN
     Dosage: 65 MG, CYCLIC (C5,D15)
     Route: 042
     Dates: start: 20231107, end: 20231107
  16. PREGABALIN [Concomitant]
     Active Substance: PREGABALIN
     Indication: Product used for unknown indication
     Dosage: 75 MG, TWICE DAILY (MORNING AND EVENING)
     Route: 065
  17. TRAMADOL [Concomitant]
     Active Substance: TRAMADOL\TRAMADOL HYDROCHLORIDE
     Indication: Product used for unknown indication
     Dosage: 100 MG, TWICE DAILY (IF NECESSARY)
     Route: 065

REACTIONS (10)
  - Septic shock [Fatal]
  - Bone marrow failure [Fatal]
  - Multiple organ dysfunction syndrome [Fatal]
  - Diarrhoea haemorrhagic [Unknown]
  - Diarrhoea [Unknown]
  - Haematuria [Unknown]
  - Escherichia urinary tract infection [Not Recovered/Not Resolved]
  - Klebsiella urinary tract infection [Not Recovered/Not Resolved]
  - Underdose [Unknown]
  - Off label use [Unknown]

NARRATIVE: CASE EVENT DATE: 20230627
